FAERS Safety Report 8004992-3 (Version None)
Quarter: 2011Q4

REPORT INFORMATION
  Report Type: 
  Country: None (occurrence: None)
  Receive Date: 20111223
  Receipt Date: 20111219
  Transmission Date: 20120403
  Serious: Yes (Hospitalization)
  Sender: FDA-Public Use
  Company Number: US-AMGEN-USASP2011067798

PATIENT
  Age: 60 Year
  Sex: Female

DRUGS (1)
  1. ENBREL [Suspect]
     Indication: RHEUMATOID ARTHRITIS
     Dosage: 50 MG, QWK
     Dates: start: 20100415

REACTIONS (4)
  - PNEUMOTHORAX [None]
  - LUNG NEOPLASM [None]
  - FINGER DEFORMITY [None]
  - RHEUMATOID ARTHRITIS [None]
